FAERS Safety Report 6818407-1 (Version None)
Quarter: 2010Q3

REPORT INFORMATION
  Report Type: 
  Country: None (occurrence: None)
  Receive Date: 20100706
  Receipt Date: 20071228
  Transmission Date: 20110219
  Serious: Yes (Other)
  Sender: FDA-Public Use
  Company Number: US-PFIZER INC-2008000019

PATIENT
  Sex: Female
  Weight: 54.4 kg

DRUGS (3)
  1. ZITHROMAX [Suspect]
     Indication: COUGH
     Dates: start: 20071226
  2. ZYRTEC [Concomitant]
  3. SYNTHROID [Concomitant]

REACTIONS (1)
  - DEAFNESS [None]
